FAERS Safety Report 10147155 (Version 1)
Quarter: 2014Q2

REPORT INFORMATION
  Report Type: Spontaneous
  Country: US (occurrence: US)
  Receive Date: 20140501
  Receipt Date: 20140501
  Transmission Date: 20141212
  Serious: Yes (Hospitalization, Other)
  Sender: FDA-Public Use
  Company Number: US-TEVA-478224USA

PATIENT
  Age: 45 Year
  Sex: Male

DRUGS (2)
  1. COPAXONE [Suspect]
     Indication: MULTIPLE SCLEROSIS
     Dosage: 20 MILLIGRAM DAILY;
     Dates: start: 20140303
  2. COPAXONE [Suspect]
     Dosage: 8.5714 MILLIGRAM DAILY; 2 INJECTIONS 3 TIMES WEEKLY

REACTIONS (2)
  - Diplegia [Not Recovered/Not Resolved]
  - Drug prescribing error [Unknown]
